FAERS Safety Report 9096863 (Version 1)
Quarter: 2013Q1

REPORT INFORMATION
  Report Type: Spontaneous
  Country: US (occurrence: US)
  Receive Date: 20130211
  Receipt Date: 20130211
  Transmission Date: 20140127
  Serious: Yes (Hospitalization)
  Sender: FDA-Public Use
  Company Number: PHEH2012US023672

PATIENT
  Age: 66 Year
  Sex: Male

DRUGS (2)
  1. GLEEVEC [Suspect]
     Indication: GRAFT VERSUS HOST DISEASE
     Dosage: 400 MG, DAILY
     Route: 048
     Dates: start: 20110202, end: 20121121
  2. GLEEVEC [Suspect]
     Dosage: 400 MG, DAILY
     Route: 048

REACTIONS (3)
  - Clostridium difficile infection [Recovered/Resolved]
  - Pyrexia [Not Recovered/Not Resolved]
  - Diarrhoea [Recovered/Resolved]
